FAERS Safety Report 6614893-0 (Version None)
Quarter: 2010Q1

REPORT INFORMATION
  Report Type: 
  Country: None (occurrence: None)
  Receive Date: 20100305
  Receipt Date: 20100224
  Transmission Date: 20100710
  Serious: Yes (Other)
  Sender: FDA-Public Use
  Company Number: US-BIOGENIDEC-2010BI006677

PATIENT
  Sex: Female

DRUGS (2)
  1. AVONEX [Suspect]
     Indication: MULTIPLE SCLEROSIS
     Route: 030
     Dates: start: 20020731
  2. COPAXONE [Concomitant]

REACTIONS (5)
  - BREAST CANCER [None]
  - CERVIX CARCINOMA STAGE III [None]
  - MYOCARDIAL INFARCTION [None]
  - OVARIAN CANCER [None]
  - UTERINE CANCER [None]
